FAERS Safety Report 24574915 (Version 1)
Quarter: 2024Q4

REPORT INFORMATION
  Report Type: Report from Study
  Country: US (occurrence: US)
  Receive Date: 20241104
  Receipt Date: 20241104
  Transmission Date: 20250114
  Serious: Yes (Life-Threatening, Hospitalization)
  Sender: IMMUNOCORE
  Company Number: US-IMMUNOCORE, LTD.-2024-IMC-003306

PATIENT
  Age: 73 Year
  Sex: Female

DRUGS (1)
  1. KIMMTRAK [Suspect]
     Active Substance: TEBENTAFUSP-TEBN
     Indication: Metastatic ocular melanoma
     Dosage: 20 MICROGRAM/DOSE 1
     Dates: start: 20241023

REACTIONS (5)
  - Hypotension [Not Recovered/Not Resolved]
  - Dysphagia [Not Recovered/Not Resolved]
  - Speech disorder [Not Recovered/Not Resolved]
  - Chills [Not Recovered/Not Resolved]
  - Ill-defined disorder [Not Recovered/Not Resolved]

NARRATIVE: CASE EVENT DATE: 20241023
